FAERS Safety Report 8901629 (Version 1)
Quarter: 2012Q4

REPORT INFORMATION
  Report Type: Spontaneous
  Country: US (occurrence: None)
  Receive Date: 20121108
  Receipt Date: 20121108
  Transmission Date: 20130627
  Serious: Yes (Disabling)
  Sender: FDA-Public Use
  Company Number: None

PATIENT
  Age: 67 Year
  Sex: Male
  Weight: 80.29 kg

DRUGS (1)
  1. CIALIS 5MG ELI LILLY [Suspect]
     Indication: DISORDER PENIS
     Dosage: 5mg every other day other
     Route: 050
     Dates: start: 20120911, end: 20120915

REACTIONS (5)
  - Vision blurred [None]
  - Visual impairment [None]
  - Colour blindness [None]
  - Retinal exudates [None]
  - Optic ischaemic neuropathy [None]
